FAERS Safety Report 6292244-1 (Version None)
Quarter: 2009Q3

REPORT INFORMATION
  Report Type: 
  Country: None (occurrence: None)
  Receive Date: 20090731
  Receipt Date: 20090727
  Transmission Date: 20100115
  Serious: Yes (Other)
  Sender: FDA-Public Use
  Company Number: BR-BAYER-200913032LA

PATIENT
  Age: 28 Year
  Sex: Female

DRUGS (3)
  1. YAZ [Suspect]
     Indication: DRUG USE FOR UNKNOWN INDICATION
     Route: 048
     Dates: start: 20070501, end: 20080901
  2. AEROLIN [Concomitant]
     Indication: ASTHMA
     Route: 048
  3. LORATADINA [Concomitant]
     Indication: RHINITIS
     Dosage: ONE TABLET PER DAY / 15 DAYS
     Route: 048

REACTIONS (2)
  - PREGNANCY INDUCED HYPERTENSION [None]
  - PREGNANCY ON ORAL CONTRACEPTIVE [None]
